FAERS Safety Report 21962373 (Version 1)
Quarter: 2023Q1

REPORT INFORMATION
  Report Type: Report from Study
  Country: US (occurrence: US)
  Receive Date: 20230207
  Receipt Date: 20230207
  Transmission Date: 20230418
  Serious: No
  Sender: FDA-Public Use
  Company Number: US-ORG100014127-2022000340

PATIENT
  Age: 73 Year
  Sex: Female

DRUGS (2)
  1. LYSODREN [Suspect]
     Active Substance: MITOTANE
     Indication: Adrenal gland cancer
     Route: 048
     Dates: start: 20190620
  2. LYSODREN [Suspect]
     Active Substance: MITOTANE
     Indication: Adrenal gland cancer
     Dosage: 2 TABLETS EVERY MORNING AND 3 TABLETS EVERY EVENING
     Route: 048
     Dates: start: 20201210

REACTIONS (2)
  - Malaise [Unknown]
  - Fatigue [Unknown]
